FAERS Safety Report 7026147-1 (Version None)
Quarter: 2010Q4

REPORT INFORMATION
  Report Type: 
  Country: None (occurrence: None)
  Receive Date: 20101004
  Receipt Date: 20100928
  Transmission Date: 20110411
  Serious: No
  Sender: FDA-Public Use
  Company Number: US-BIOGENIDEC-2010BI033634

PATIENT
  Age: 49 Year
  Sex: Female

DRUGS (3)
  1. AVONEX [Suspect]
     Indication: MULTIPLE SCLEROSIS
     Route: 030
     Dates: start: 20100902, end: 20100910
  2. AVONEX [Suspect]
     Route: 030
     Dates: start: 20100917
  3. XANAX [Concomitant]
     Indication: ANXIETY
     Route: 048

REACTIONS (5)
  - ANXIETY [None]
  - DEPRESSED MOOD [None]
  - EMOTIONAL DISORDER [None]
  - HYPOTONIA [None]
  - INFLUENZA LIKE ILLNESS [None]
